FAERS Safety Report 5155471-2 (Version None)
Quarter: 2006Q4

REPORT INFORMATION
  Report Type: 
  Country: None (occurrence: None)
  Receive Date: 20061121
  Receipt Date: 20061113
  Transmission Date: 20070319
  Serious: Yes (Other)
  Sender: FDA-Public Use
  Company Number: US-ROXANE LABORATORIES, INC-2006-BP-13269RO

PATIENT
  Sex: Female
  Weight: 3 kg

DRUGS (3)
  1. FLECAINIDE ACETATE [Suspect]
     Indication: SUPRAVENTRICULAR TACHYCARDIA
  2. DIGOXIN [Suspect]
     Indication: TACHYCARDIA
     Route: 030
  3. DIGOXIN [Suspect]
     Indication: ATRIAL FLUTTER
     Route: 048

REACTIONS (4)
  - ATRIAL FLUTTER [None]
  - BUNDLE BRANCH BLOCK [None]
  - DRUG EXPOSURE DURING PREGNANCY [None]
  - THERAPY NON-RESPONDER [None]
